FAERS Safety Report 16337486 (Version 1)
Quarter: 2019Q2

REPORT INFORMATION
  Report Type: Spontaneous
  Country: HU (occurrence: HU)
  Receive Date: 20190521
  Receipt Date: 20190521
  Transmission Date: 20190711
  Serious: Yes (Hospitalization)
  Sender: FDA-Public Use
  Company Number: HU-ROCHE-2317496

PATIENT
  Age: 40 Year
  Sex: Female

DRUGS (2)
  1. COTELLIC [Concomitant]
     Active Substance: COBIMETINIB
     Indication: METASTATIC MALIGNANT MELANOMA
     Route: 065
     Dates: start: 20190401, end: 20190413
  2. ZELBORAF [Suspect]
     Active Substance: VEMURAFENIB
     Indication: METASTATIC MALIGNANT MELANOMA
     Dosage: START DATE 01/APR/2019
     Route: 048
     Dates: end: 20190413

REACTIONS (7)
  - Erythema [Unknown]
  - Dyspnoea [Recovered/Resolved]
  - External ear pain [Unknown]
  - Toxic skin eruption [Recovering/Resolving]
  - Arthralgia [Unknown]
  - Cough [Unknown]
  - Auricular swelling [Unknown]

NARRATIVE: CASE EVENT DATE: 20180412
